FAERS Safety Report 21255254 (Version 3)
Quarter: 2022Q4

REPORT INFORMATION
  Report Type: Spontaneous
  Country: US (occurrence: US)
  Receive Date: 20220825
  Receipt Date: 20221018
  Transmission Date: 20230113
  Serious: Yes (Other)
  Sender: FDA-Public Use
  Company Number: US-ORGANON-O2207USA002373

PATIENT
  Age: 18 Year
  Sex: Female
  Weight: 97.052 kg

DRUGS (1)
  1. NEXPLANON [Suspect]
     Active Substance: ETONOGESTREL
     Indication: Contraception
     Dosage: ONE ROD OF 68 MG EVERY 3 YEARS IN LEFT UPPER ARM
     Route: 059
     Dates: start: 20210114, end: 20220714

REACTIONS (6)
  - Device dislocation [Recovered/Resolved]
  - Menstruation irregular [Unknown]
  - Implant site scar [Unknown]
  - Implant site fibrosis [Unknown]
  - Device breakage [Recovered/Resolved]
  - Complication of device removal [Recovered/Resolved]

NARRATIVE: CASE EVENT DATE: 20220714
